FAERS Safety Report 19307959 (Version 1)
Quarter: 2021Q2

REPORT INFORMATION
  Report Type: Spontaneous
  Country: BR (occurrence: BR)
  Receive Date: 20210526
  Receipt Date: 20210526
  Transmission Date: 20210717
  Serious: Yes (Other)
  Sender: FDA-Public Use
  Company Number: BR-009507513-2105BRA006180

PATIENT
  Sex: Female
  Weight: 58 kg

DRUGS (11)
  1. JANUMET [Suspect]
     Active Substance: METFORMIN HYDROCHLORIDE\SITAGLIPTIN PHOSPHATE
     Indication: TYPE 2 DIABETES MELLITUS
     Dosage: 50/850 MG, 1 TABLET IN THE LUNCH TIME AND 1 TABLET AT DINNER TIME
     Route: 048
     Dates: start: 2016
  2. METFORMIN [Suspect]
     Active Substance: METFORMIN HYDROCHLORIDE
     Dosage: UNK
     Dates: end: 2016
  3. PERJETA [Suspect]
     Active Substance: PERTUZUMAB
     Dosage: UNK
     Dates: start: 20210508, end: 20210509
  4. SELOZOK [Concomitant]
     Active Substance: METOPROLOL SUCCINATE
     Indication: HYPERTENSION
     Dosage: 25 MILLIGRAM, IN THE MORNING
  5. DIAMICRON [Concomitant]
     Active Substance: GLICLAZIDE
     Indication: TYPE 2 DIABETES MELLITUS
     Dosage: 60 MILLIGRAM IN THE MORNING
  6. BASAGLAR [Concomitant]
     Active Substance: INSULIN GLARGINE
     Indication: TYPE 2 DIABETES MELLITUS
     Dosage: 6 UNITS AT 10 A.M.
  7. NAPRIX [Concomitant]
     Active Substance: RAMIPRIL
     Indication: HYPERTENSION
     Dosage: 10 MILLIGRAM, IN THE MORNING
  8. HERCEPTIN [Suspect]
     Active Substance: TRASTUZUMAB
     Dosage: UNK
     Dates: start: 20210508, end: 20210509
  9. JANUVIA [Suspect]
     Active Substance: SITAGLIPTIN PHOSPHATE
     Indication: TYPE 2 DIABETES MELLITUS
     Dosage: UNK
     Route: 048
     Dates: end: 2016
  10. INDAPEN SR [Concomitant]
     Active Substance: INDAPAMIDE
     Indication: HYPERTENSION
     Dosage: 1.5 MILLIGRAM, IN THE MORNING
  11. ACETYLSALICYLIC ACID [Concomitant]
     Active Substance: ASPIRIN
     Indication: HYPERTENSION
     Dosage: 100 MILLIGRAM, IN THE MORNING

REACTIONS (6)
  - Insulin-requiring type 2 diabetes mellitus [Unknown]
  - Breast cancer [Unknown]
  - Diarrhoea [Not Recovered/Not Resolved]
  - Dysbiosis [Unknown]
  - Flatulence [Unknown]
  - Helminthic infection [Unknown]

NARRATIVE: CASE EVENT DATE: 202010
